FAERS Safety Report 9297552 (Version 1)
Quarter: 2013Q2

REPORT INFORMATION
  Report Type: Spontaneous
  Country: US (occurrence: US)
  Receive Date: 20130520
  Receipt Date: 20130520
  Transmission Date: 20140414
  Serious: Yes (Hospitalization)
  Sender: FDA-Public Use
  Company Number: US-BAYER-2013-060503

PATIENT
  Age: 25 Year
  Sex: Female
  Weight: 125 kg

DRUGS (26)
  1. YASMIN [Suspect]
  2. BUTALBITAL [Concomitant]
  3. DILAUDID [Concomitant]
     Dosage: 2 MG, UNK
     Route: 030
     Dates: start: 20041207
  4. BENADRYL [Concomitant]
     Dosage: 25 MG, UNK
     Dates: start: 20041207
  5. HYDROCODONE W/APAP [Concomitant]
     Dosage: 5/500 MG
  6. PROPOXYPHENE [Concomitant]
  7. LEVAQUIN [Concomitant]
     Route: 048
  8. ZITHROMAX [Concomitant]
     Dosage: UNK
     Route: 048
     Dates: start: 20041227
  9. PREDNISONE [Concomitant]
     Dosage: UNK
     Dates: start: 20041227
  10. VICODIN [Concomitant]
     Dosage: UNK
     Dates: start: 20041227
  11. PHENERGAN [Concomitant]
     Dosage: 25 MG, UNK
     Route: 030
  12. PROMETHAZINE [Concomitant]
     Route: 048
  13. TUSSIONEX [Concomitant]
  14. NASONEX [Concomitant]
  15. CLARITIN [Concomitant]
  16. CLARINEX [DESLORATADINE] [Concomitant]
  17. ADVAIR [Concomitant]
     Dosage: 250/50
  18. POTASSIUM CHLORIDE [Concomitant]
  19. ALBUTEROL [Concomitant]
  20. TOPAMAX [Concomitant]
  21. RANITIDINE [Concomitant]
  22. ZANTAC [Concomitant]
     Dosage: 300 MG, DAILY
  23. LEXAPRO [Concomitant]
  24. LASIX [Concomitant]
     Dosage: 40 MG, UNK
  25. PREVACID [Concomitant]
  26. KETEK [Concomitant]

REACTIONS (2)
  - Pulmonary embolism [None]
  - Deep vein thrombosis [None]
